FAERS Safety Report 17528237 (Version 6)
Quarter: 2020Q2

REPORT INFORMATION
  Report Type: Report from Study
  Country: CA (occurrence: CA)
  Receive Date: 20200312
  Receipt Date: 20200625
  Transmission Date: 20200713
  Serious: Yes (Hospitalization, Other)
  Sender: FDA-Public Use
  Company Number: CA-BEH-2020112567

PATIENT
  Age: 37 Year
  Sex: Female

DRUGS (8)
  1. BERINERT [Suspect]
     Active Substance: HUMAN C1-ESTERASE INHIBITOR
     Indication: PROPHYLAXIS
     Dosage: 3000 INTERNATIONAL UNIT, PRN
     Route: 042
     Dates: start: 20151118
  2. BERINERT [Suspect]
     Active Substance: HUMAN C1-ESTERASE INHIBITOR
     Dosage: 1500 INTERNATIONAL UNIT, PRN
     Route: 042
     Dates: start: 20151118
  3. BERINERT [Suspect]
     Active Substance: HUMAN C1-ESTERASE INHIBITOR
     Indication: PROPHYLAXIS
     Dosage: 3000 INTERNATIONAL UNIT, PRN
     Route: 042
     Dates: start: 20151118
  4. BERINERT [Suspect]
     Active Substance: HUMAN C1-ESTERASE INHIBITOR
     Indication: HEREDITARY ANGIOEDEMA WITH NORMAL C1 ESTERASE INHIBITOR
     Dosage: 1500 INTERNATIONAL UNIT, QD
     Route: 042
     Dates: start: 20151118
  5. BERINERT [Suspect]
     Active Substance: HUMAN C1-ESTERASE INHIBITOR
     Dosage: 3000 INTERNATIONAL UNIT
     Route: 042
     Dates: start: 20151118
  6. BERINERT [Suspect]
     Active Substance: HUMAN C1-ESTERASE INHIBITOR
     Indication: HEREDITARY ANGIOEDEMA WITH NORMAL C1 ESTERASE INHIBITOR
     Dosage: 1500 INTERNATIONAL UNIT, QD
     Route: 042
     Dates: start: 20151118
  7. BERINERT [Suspect]
     Active Substance: HUMAN C1-ESTERASE INHIBITOR
     Dosage: 1500 INTERNATIONAL UNIT, PRN
     Route: 042
     Dates: start: 20151118
  8. BERINERT [Suspect]
     Active Substance: HUMAN C1-ESTERASE INHIBITOR
     Dosage: 3000 INTERNATIONAL UNIT
     Route: 042
     Dates: start: 20151118

REACTIONS (13)
  - Depressed mood [Not Recovered/Not Resolved]
  - No adverse event [Unknown]
  - Pain in extremity [Not Recovered/Not Resolved]
  - Hereditary angioedema [Recovered/Resolved with Sequelae]
  - Infection [Unknown]
  - Central venous catheterisation [Recovered/Resolved]
  - Sepsis [Unknown]
  - Pain [Not Recovered/Not Resolved]
  - Vascular device infection [Recovered/Resolved]
  - Hospitalisation [Recovered/Resolved with Sequelae]
  - Product use in unapproved indication [Unknown]
  - Hereditary angioedema [Not Recovered/Not Resolved]
  - Central venous catheterisation [Not Recovered/Not Resolved]

NARRATIVE: CASE EVENT DATE: 202001
